FAERS Safety Report 8925787 (Version 1)
Quarter: 2012Q4

REPORT INFORMATION
  Report Type: 
  Country: FR (occurrence: FR)
  Receive Date: 20121126
  Receipt Date: 20121126
  Transmission Date: 20130627
  Serious: Yes (Life-Threatening, Hospitalization)
  Sender: FDA-Public Use
  Company Number: FR-UCBSA-069826

PATIENT
  Age: 48 Year
  Sex: Female

DRUGS (5)
  1. CIMZIA [Suspect]
     Indication: RHEUMATOID ARTHRITIS
     Dosage: DOSE INTAKE: 200 MG
     Route: 058
     Dates: start: 201112, end: 201206
  2. METOJECT [Concomitant]
     Indication: RHEUMATOID ARTHRITIS
     Dosage: 20 MG WEEKLY
     Route: 058
     Dates: start: 201104
  3. BI-PROFENID [Concomitant]
     Indication: RHEUMATOID ARTHRITIS
     Route: 048
     Dates: start: 201112
  4. INIPOMP [Concomitant]
     Indication: RHEUMATOID ARTHRITIS
     Route: 048
     Dates: start: 201112
  5. STINOX [Concomitant]
     Dosage: UNKNOWN DOSE
     Route: 048

REACTIONS (1)
  - Pyelonephritis [Recovered/Resolved]
